FAERS Safety Report 16169150 (Version 3)
Quarter: 2019Q2

REPORT INFORMATION
  Report Type: Spontaneous
  Country: JP (occurrence: JP)
  Receive Date: 20190408
  Receipt Date: 20190620
  Transmission Date: 20190711
  Serious: Yes (Hospitalization)
  Sender: FDA-Public Use
  Company Number: JP-ELI_LILLY_AND_COMPANY-JP201904000012

PATIENT
  Sex: Female
  Weight: 49 kg

DRUGS (2)
  1. HALOMONTH [Concomitant]
     Active Substance: HALOPERIDOL DECANOATE
     Indication: SCHIZOPHRENIA
     Dosage: 25 MG, MONTHLY (1/M)
     Route: 030
  2. TRULICITY [Suspect]
     Active Substance: DULAGLUTIDE
     Indication: TYPE 2 DIABETES MELLITUS
     Dosage: 0.75 MG, WEEKLY (1/W)
     Route: 058
     Dates: start: 20190213, end: 20190213

REACTIONS (6)
  - Sepsis [Recovered/Resolved]
  - Platelet count decreased [Unknown]
  - Pyelonephritis acute [Recovered/Resolved]
  - Tubulointerstitial nephritis [Recovered/Resolved with Sequelae]
  - Cardiac failure [Recovered/Resolved]
  - Hepatic function abnormal [Recovered/Resolved]

NARRATIVE: CASE EVENT DATE: 20190216
